FAERS Safety Report 8767397 (Version 1)
Quarter: 2012Q4

REPORT INFORMATION
  Report Type: 
  Country: NL (occurrence: NL)
  Receive Date: 20120904
  Receipt Date: 20120904
  Transmission Date: 20130627
  Serious: Yes (Hospitalization)
  Sender: FDA-Public Use
  Company Number: NL-PFIZER INC-2012212434

PATIENT
  Age: 72 Year
  Sex: Female
  Weight: 49.5 kg

DRUGS (10)
  1. GENOTROPIN [Suspect]
     Indication: HYPOPITUITARISM
     Dosage: 0.5 mg, 1x/day, 7/wk
     Route: 058
     Dates: start: 20040823
  2. CORTISONE ACETATE [Concomitant]
     Indication: BLOOD CORTICOTROPHIN DECREASED
     Dosage: UNK
     Dates: start: 19810701
  3. DESMOPRESSIN [Concomitant]
     Indication: BLOOD ANTIDIURETIC HORMONE DECREASED
     Dosage: UNK
     Dates: start: 19810901
  4. TIMOPTOL [Concomitant]
     Indication: GLAUCOMA
     Dosage: UNK
     Dates: start: 19960410
  5. HYDROCORTISONE [Concomitant]
     Indication: BLOOD CORTICOTROPHIN DECREASED
     Dosage: UNK
     Dates: start: 19990217
  6. FOSAMAX [Concomitant]
     Indication: OSTEOPOROSIS
     Dosage: UNK
     Dates: start: 19990217
  7. CALCIUM-SANDOZ [Concomitant]
     Indication: OSTEOPOROSIS
     Dosage: UNK
     Dates: start: 19990217
  8. LEVOTHYROXINE [Concomitant]
     Indication: BLOOD THYROID STIMULATING HORMONE DECREASED
     Dosage: UNK
     Dates: start: 19810901
  9. LEVOTHYROXINE [Concomitant]
     Indication: PRIMARY HYPOTHYROIDISM
  10. BONIVA [Concomitant]
     Indication: OSTEOPOROSIS
     Dosage: UNK
     Dates: start: 20061005

REACTIONS (2)
  - Vomiting [Unknown]
  - Diarrhoea [Unknown]
